FAERS Safety Report 11940079 (Version 1)
Quarter: 2016Q1

REPORT INFORMATION
  Report Type: Other
  Country: US (occurrence: US)
  Receive Date: 20160122
  Receipt Date: 20160122
  Transmission Date: 20160526
  Serious: Yes (Other)
  Sender: FDA-Public Use
  Company Number: US-SHIRE-US201600440

PATIENT
  Age: 47 Year
  Sex: Male

DRUGS (3)
  1. CINRYZE [Suspect]
     Active Substance: HUMAN C1-ESTERASE INHIBITOR
     Indication: PROPHYLAXIS
  2. FIRAZYR [Concomitant]
     Active Substance: ICATIBANT ACETATE
     Indication: HEREDITARY ANGIOEDEMA
     Dosage: 30 MG, AS REQ^D
     Route: 058
     Dates: start: 20140325
  3. CINRYZE [Suspect]
     Active Substance: HUMAN C1-ESTERASE INHIBITOR
     Indication: HEREDITARY ANGIOEDEMA
     Dosage: 1000 UNITS, OTHER (EVERY 3 DAYS)
     Route: 042
     Dates: start: 20131104

REACTIONS (5)
  - Oropharyngeal pain [Recovered/Resolved]
  - Swollen tongue [Recovered/Resolved]
  - Hereditary angioedema [Unknown]
  - Product use issue [Recovered/Resolved]
  - Oropharyngeal swelling [Recovered/Resolved]

NARRATIVE: CASE EVENT DATE: 20151221
